FAERS Safety Report 4647268-4 (Version None)
Quarter: 2005Q2

REPORT INFORMATION
  Report Type: 
  Country: None (occurrence: None)
  Receive Date: 20050426
  Receipt Date: 20050410
  Transmission Date: 20051028
  Serious: Yes (Other)
  Sender: FDA-Public Use
  Company Number: 2005061471

PATIENT
  Age: 58 Year
  Sex: Female

DRUGS (3)
  1. BEXTRA [Suspect]
     Indication: ARTHRITIS
     Dosage: 20 MG (10 MG, 1 IN 1 D), ORAL
     Route: 048
     Dates: start: 20050408
  2. DIPHENHYDRAMINE HCL [Suspect]
     Indication: PROPHYLAXIS
     Dosage: UNKNOWN
     Route: 065
     Dates: start: 20020101
  3. PREDNISONE [Suspect]
     Indication: PROPHYLAXIS
     Dosage: ORAL
     Route: 048
     Dates: start: 20020101

REACTIONS (13)
  - ARTHRALGIA [None]
  - ARTHRITIS [None]
  - COUGH [None]
  - DIARRHOEA [None]
  - DIFFICULTY IN WALKING [None]
  - DYSPNOEA [None]
  - FEAR [None]
  - HAEMORRHAGE [None]
  - INSOMNIA [None]
  - LUNG DISORDER [None]
  - PRURITUS [None]
  - RASH ERYTHEMATOUS [None]
  - RASH MACULO-PAPULAR [None]
